FAERS Safety Report 4979954-0 (Version None)
Quarter: 2006Q2

REPORT INFORMATION
  Report Type: 
  Country: None (occurrence: None)
  Receive Date: 20060421
  Receipt Date: 20051202
  Transmission Date: 20061013
  Serious: Yes (Hospitalization, Disabling)
  Sender: FDA-Public Use
  Company Number: US-MERCK-0512USA00441

PATIENT
  Age: 44 Year
  Sex: Male
  Weight: 75 kg

DRUGS (2)
  1. VIOXX [Suspect]
     Indication: MUSCULOSKELETAL STIFFNESS
     Route: 048
     Dates: start: 19990201, end: 20001201
  2. VIOXX [Suspect]
     Route: 048
     Dates: start: 19990201, end: 20001201

REACTIONS (6)
  - DIABETES MELLITUS [None]
  - MENINGITIS [None]
  - MYOCARDIAL INFARCTION [None]
  - OVERDOSE [None]
  - PALPITATIONS [None]
  - TRANSIENT ISCHAEMIC ATTACK [None]
